FAERS Safety Report 23259772 (Version 1)
Quarter: 2023Q4

REPORT INFORMATION
  Report Type: Spontaneous
  Country: US (occurrence: US)
  Receive Date: 20231204
  Receipt Date: 20231204
  Transmission Date: 20240110
  Serious: Yes (Other)
  Sender: FDA-Public Use
  Company Number: US-PFIZER INC-PV202300117105

PATIENT
  Age: 80 Year
  Sex: Male
  Weight: 67.7 kg

DRUGS (1)
  1. IBRANCE [Suspect]
     Active Substance: PALBOCICLIB
     Indication: Dedifferentiated liposarcoma
     Dosage: 100 MG, CYCLIC (DAILY CONSECUTIVE FOLLOWED BY 7 DAYS OFF FOR A 28 DAY/DAILY FOR 21 DAYS)
     Route: 048

REACTIONS (5)
  - Renal failure [Unknown]
  - Fatigue [Not Recovered/Not Resolved]
  - Abdominal pain [Unknown]
  - Vertigo [Recovering/Resolving]
  - Off label use [Unknown]
